FAERS Safety Report 6696658-7 (Version None)
Quarter: 2010Q2

REPORT INFORMATION
  Report Type: 
  Country: None (occurrence: None)
  Receive Date: 20100426
  Receipt Date: 20100416
  Transmission Date: 20101027
  Serious: Yes (Other)
  Sender: FDA-Public Use
  Company Number: IE-AMGEN-QUU406828

PATIENT
  Age: 42 Year
  Sex: Female

DRUGS (2)
  1. NPLATE [Suspect]
     Indication: IDIOPATHIC THROMBOCYTOPENIC PURPURA
  2. UNSPECIFIED MEDICATION [Concomitant]

REACTIONS (1)
  - HEPATIC FAILURE [None]
